FAERS Safety Report 24573421 (Version 2)
Quarter: 2025Q2

REPORT INFORMATION
  Report Type: Spontaneous
  Country: US (occurrence: US)
  Receive Date: 20241102
  Receipt Date: 20250519
  Transmission Date: 20250716
  Serious: Yes (Death, Hospitalization, Other)
  Sender: APOTEX
  Company Number: US-APOTEX-2024AP017029

PATIENT
  Age: 64 Year
  Sex: Female

DRUGS (1)
  1. METFORMIN [Suspect]
     Active Substance: METFORMIN HYDROCHLORIDE
     Indication: Product used for unknown indication
     Route: 065

REACTIONS (17)
  - Acute kidney injury [Fatal]
  - Coma [Fatal]
  - Hepatotoxicity [Fatal]
  - Thrombocytopenia [Fatal]
  - Electrocardiogram QT prolonged [Fatal]
  - Rhabdomyolysis [Fatal]
  - Depressed level of consciousness [Fatal]
  - Haemolysis [Fatal]
  - Delirium [Fatal]
  - Metabolic acidosis [Fatal]
  - Anion gap abnormal [Fatal]
  - Coagulopathy [Fatal]
  - Hypotension [Fatal]
  - Leukocytosis [Fatal]
  - Toxicity to various agents [Fatal]
  - Hyperglycaemia [Fatal]
  - Osmolar gap abnormal [Fatal]
